FAERS Safety Report 7609429-1 (Version None)
Quarter: 2011Q3

REPORT INFORMATION
  Report Type: 
  Country: None (occurrence: None)
  Receive Date: 20110714
  Receipt Date: 20110706
  Transmission Date: 20111222
  Serious: Yes (Hospitalization)
  Sender: FDA-Public Use
  Company Number: CM-GILEAD-2011-0041406

PATIENT
  Age: 32 Year
  Sex: Female

DRUGS (6)
  1. ASPIRIN [Concomitant]
     Indication: PRODUCT USED FOR UNKNOWN INDICATION
     Dates: start: 20110518, end: 20110701
  2. COTRIM [Concomitant]
     Indication: OPPORTUNISTIC INFECTION
     Dates: start: 20080101
  3. LOPINAVIR/RITONAVIR [Concomitant]
     Indication: HIV INFECTION
     Dates: start: 20100115
  4. FUROSEMIDE [Concomitant]
     Indication: OEDEMA PERIPHERAL
     Dates: start: 20110421
  5. EMTRICITABINE AND TENOFOVIR DISOPROXIL FUMARATE [Suspect]
     Indication: HIV INFECTION
     Dates: start: 20100115
  6. SPIRONOLACTONE [Concomitant]
     Indication: OEDEMA PERIPHERAL
     Dates: start: 20110610

REACTIONS (2)
  - DEEP VEIN THROMBOSIS [None]
  - GASTRITIS [None]
